FAERS Safety Report 10312588 (Version 1)
Quarter: 2014Q3

REPORT INFORMATION
  Report Type: Spontaneous
  Country: US (occurrence: None)
  Receive Date: 20140717
  Receipt Date: 20140717
  Transmission Date: 20150326
  Serious: Yes (Death)
  Sender: FDA-Public Use
  Company Number: None

PATIENT
  Age: 61 Year
  Sex: Male

DRUGS (1)
  1. STIVARGA [Suspect]
     Active Substance: REGORAFENIB
     Indication: CHRONIC MYELOID LEUKAEMIA
     Dosage: 120MG, DAILY X 21 DAYS ON 7, ORALLY
     Route: 048
     Dates: start: 20131014, end: 20140429

REACTIONS (3)
  - Gastrointestinal stromal tumour [None]
  - Cardiac failure [None]
  - Malignant neoplasm progression [None]

NARRATIVE: CASE EVENT DATE: 20140430
